FAERS Safety Report 4765677-X (Version None)
Quarter: 2005Q3

REPORT INFORMATION
  Report Type: 
  Country: None (occurrence: None)
  Receive Date: 20050906
  Receipt Date: 20050825
  Transmission Date: 20060218
  Serious: Yes (Hospitalization, Disabling)
  Sender: FDA-Public Use
  Company Number: 2005US001045

PATIENT
  Age: 36 Year
  Sex: Female

DRUGS (1)
  1. AMBISOME [Suspect]
     Indication: MENINGITIS CRYPTOCOCCAL

REACTIONS (1)
  - NEUROPATHY PERIPHERAL [None]
